FAERS Safety Report 6686184-3 (Version None)
Quarter: 2010Q2

REPORT INFORMATION
  Report Type: 
  Country: None (occurrence: None)
  Receive Date: 20100419
  Receipt Date: 20100410
  Transmission Date: 20101027
  Serious: Yes (Hospitalization)
  Sender: FDA-Public Use
  Company Number: US-B.I. PHARMACEUTICALS,INC./RIDGEFIELD-2010-BP-04178BP

PATIENT
  Sex: Female

DRUGS (7)
  1. DULCOLAX [Suspect]
     Indication: CONSTIPATION
     Route: 048
     Dates: start: 20040101, end: 20051101
  2. DULCOLAX [Suspect]
     Dosage: 75 MG
     Route: 048
     Dates: start: 20051101, end: 20071101
  3. DULCOLAX [Suspect]
     Route: 048
     Dates: start: 20071101, end: 20081201
  4. DULCOLAX [Suspect]
     Dosage: 125 MG
     Route: 048
     Dates: start: 20081201, end: 20090101
  5. DULCOLAX [Suspect]
     Route: 048
     Dates: start: 20090101
  6. ALBUTEROL [Concomitant]
     Indication: ASTHMA
     Route: 055
     Dates: start: 19900101
  7. ADVAIR DISKUS 100/50 [Concomitant]
     Indication: ASTHMA
     Dates: start: 20100301

REACTIONS (5)
  - CONSTIPATION [None]
  - DRUG EXPOSURE DURING PREGNANCY [None]
  - NODULE [None]
  - THYROID CANCER [None]
  - THYROID DISORDER [None]
